FAERS Safety Report 10622743 (Version 1)
Quarter: 2014Q4

REPORT INFORMATION
  Report Type: Spontaneous
  Country: US (occurrence: US)
  Receive Date: 20141203
  Receipt Date: 20141203
  Transmission Date: 20150529
  Serious: No
  Sender: FDA-Public Use
  Company Number: US-PFIZER INC-2014329885

PATIENT
  Sex: Female

DRUGS (1)
  1. PREMPRO [Suspect]
     Active Substance: ESTROGENS, CONJUGATED\MEDROXYPROGESTERONE ACETATE
     Dosage: UNK, 1X/DAY (WITH LUNCH)
     Dates: start: 2012

REACTIONS (4)
  - Hot flush [Unknown]
  - Drug ineffective [Unknown]
  - Insomnia [Unknown]
  - Night sweats [Unknown]
